FAERS Safety Report 10018622 (Version 1)
Quarter: 2014Q1

REPORT INFORMATION
  Report Type: Spontaneous
  Country: GB (occurrence: GB)
  Receive Date: 20140318
  Receipt Date: 20140318
  Transmission Date: 20141002
  Serious: Yes (Life-Threatening, Hospitalization)
  Sender: FDA-Public Use
  Company Number: GB-WATSON-2014-04563

PATIENT
  Age: 42 Year
  Sex: Female
  Weight: 65 kg

DRUGS (1)
  1. SUMATRIPTAN (UNKNOWN) [Suspect]
     Indication: MIGRAINE
     Dosage: 50 MG, DAILY
     Route: 048
     Dates: start: 20140109, end: 20140110

REACTIONS (2)
  - Myocardial infarction [Recovering/Resolving]
  - Arteriospasm coronary [Recovering/Resolving]
